FAERS Safety Report 5476751-7 (Version None)
Quarter: 2007Q3

REPORT INFORMATION
  Report Type: 
  Country: None (occurrence: None)
  Receive Date: 20070813
  Receipt Date: 20061017
  Transmission Date: 20080115
  Serious: Yes (Hospitalization)
  Sender: FDA-Public Use
  Company Number: 20073803

PATIENT
  Sex: Female

DRUGS (9)
  1. LIORESAL [Suspect]
     Indication: MUSCLE SPASTICITY
     Dosage: VARIABLE MCG, DAILY, INTRATHECAL
     Route: 037
  2. SINEMET [Concomitant]
  3. KEPPRA [Concomitant]
  4. PAXIL [Concomitant]
  5. WELLBUTRIN [Concomitant]
  6. HYDROCHLOROTHIAZIDE [Concomitant]
  7. MIRALAX [Concomitant]
  8. LEUCOVORIN CALCIUM [Concomitant]
  9. CALCIUM [Concomitant]

REACTIONS (19)
  - ABDOMINAL PAIN UPPER [None]
  - AGGRESSION [None]
  - AGITATION [None]
  - CATHETER RELATED COMPLICATION [None]
  - FEELING ABNORMAL [None]
  - IRRITABILITY [None]
  - MEDICAL DEVICE COMPLICATION [None]
  - MOBILITY DECREASED [None]
  - MOOD SWINGS [None]
  - MUSCLE RIGIDITY [None]
  - MUSCLE SPASTICITY [None]
  - NAUSEA [None]
  - OVERDOSE [None]
  - PAIN [None]
  - PRURITUS [None]
  - PSYCHOTIC DISORDER [None]
  - PYREXIA [None]
  - UNDERDOSE [None]
  - URINARY TRACT INFECTION [None]
